FAERS Safety Report 18184606 (Version 2)
Quarter: 2020Q3

REPORT INFORMATION
  Report Type: Spontaneous
  Country: US (occurrence: US)
  Receive Date: 20200824
  Receipt Date: 20200922
  Transmission Date: 20201103
  Serious: No
  Sender: FDA-Public Use
  Company Number: US-VIFOR (INTERNATIONAL) INC.-VIT-2020-08719

PATIENT
  Age: 51 Year
  Sex: Female
  Weight: 48.5 kg

DRUGS (1)
  1. MIRCERA [Suspect]
     Active Substance: METHOXY POLYETHYLENE GLYCOL-EPOETIN BETA
     Indication: NEPHROGENIC ANAEMIA
     Dates: start: 20200729, end: 20200729

REACTIONS (3)
  - Headache [Unknown]
  - Neck pain [Unknown]
  - Ear pain [Unknown]

NARRATIVE: CASE EVENT DATE: 20200729
